FAERS Safety Report 11823549 (Version 1)
Quarter: 2015Q4

REPORT INFORMATION
  Report Type: Spontaneous
  Country: US (occurrence: US)
  Receive Date: 20151210
  Receipt Date: 20151210
  Transmission Date: 20160305
  Serious: Yes (Other)
  Sender: FDA-Public Use
  Company Number: US-LPDUSPRD-20150487

PATIENT
  Age: 77 Year
  Sex: Female
  Weight: 47.4 kg

DRUGS (15)
  1. OMEPRAZOLE. [Concomitant]
     Active Substance: OMEPRAZOLE
     Dosage: 40 MG DELAYED RELEASE
     Route: 065
  2. TEMAZEPARN [Concomitant]
     Dosage: 15 MG
     Route: 065
  3. TOREMIDE [Concomitant]
     Dosage: 20 MG
     Route: 065
  4. DELFLEX [Concomitant]
     Active Substance: CALCIUM CHLORIDE\DEXTROSE MONOHYDRATE\MAGNESIUM CHLORIDE\SODIUM CHLORIDE\SODIUM LACTATE
  5. CALCIUM ACETATE. [Concomitant]
     Active Substance: CALCIUM ACETATE
     Dosage: 667 MG, 2 CAPSULES, 3 X A DAY
     Route: 065
  6. CITALOPRAM [Concomitant]
     Active Substance: CITALOPRAM HYDROBROMIDE
     Dosage: 20 MG
     Route: 065
  7. NEPHROCAP [Concomitant]
     Dosage: DOSE NOT UNKNOWN
     Route: 065
  8. VENOFER [Suspect]
     Active Substance: IRON SUCROSE
     Dosage: DOSE UNKNOWN
     Route: 042
     Dates: start: 20150518
  9. VITAMIN D3 [Concomitant]
     Active Substance: CHOLECALCIFEROL
     Dosage: 1,000 UNIT
     Route: 065
  10. ALPRZOLAM [Concomitant]
     Dosage: 0.5 MG
     Route: 065
  11. LIBERTY CYCLER SET [Concomitant]
     Active Substance: DEVICE
  12. CARVEDILOL. [Concomitant]
     Active Substance: CARVEDILOL
     Dosage: 25 MG
     Route: 065
  13. PRAVASTATIN [Concomitant]
     Active Substance: PRAVASTATIN\PRAVASTATIN SODIUM
     Dosage: 40 MG
     Route: 065
  14. CALCITRIOL. [Concomitant]
     Active Substance: CALCITRIOL
     Dosage: 0.25 MG
     Route: 065
  15. INSULIN [Concomitant]
     Active Substance: INSULIN NOS
     Dosage: 10 UNITS BID
     Route: 065

REACTIONS (1)
  - Hypoglycaemia [Unknown]

NARRATIVE: CASE EVENT DATE: 20150519
